FAERS Safety Report 19220278 (Version 1)
Quarter: 2021Q2

REPORT INFORMATION
  Report Type: Spontaneous
  Country: US (occurrence: US)
  Receive Date: 20210506
  Receipt Date: 20210506
  Transmission Date: 20210717
  Serious: Yes (Hospitalization, Other)
  Sender: FDA-Public Use
  Company Number: US-LUPIN PHARMACEUTICALS INC.-2021-06173

PATIENT
  Age: 57 Year
  Sex: Male

DRUGS (9)
  1. POLYMYXIN B. [Suspect]
     Active Substance: POLYMYXIN B
     Dosage: 1.5 MILLIGRAM/KILOGRAM, BID (MAINTENANCE DOSE)
     Route: 042
  2. VANCOMYCIN [Concomitant]
     Active Substance: VANCOMYCIN
     Indication: OSTEOMYELITIS BACTERIAL
     Dosage: 1.5 GRAM, TID
     Route: 042
  3. METFORMIN [Concomitant]
     Active Substance: METFORMIN HYDROCHLORIDE
     Indication: TYPE 2 DIABETES MELLITUS
     Dosage: UNK
     Route: 065
  4. LOSARTAN. [Concomitant]
     Active Substance: LOSARTAN
     Indication: HYPERTENSION
     Dosage: UNK
     Route: 065
  5. POLYMYXIN B. [Suspect]
     Active Substance: POLYMYXIN B
     Indication: OSTEOMYELITIS BACTERIAL
     Dosage: 2.5 MILLIGRAM/KILOGRAM (LOADING DOSE)
     Route: 042
  6. VANCOMYCIN [Concomitant]
     Active Substance: VANCOMYCIN
     Dosage: 1.25 GRAM, TID
     Route: 042
  7. MINOCYCLINE [Suspect]
     Active Substance: MINOCYCLINE HYDROCHLORIDE
     Indication: OSTEOMYELITIS BACTERIAL
     Dosage: 100 MILLIGRAM, BID
     Route: 042
  8. VANCOMYCIN [Concomitant]
     Active Substance: VANCOMYCIN
     Dosage: 2 GRAM, TID
     Route: 042
  9. AMLODIPINE [Concomitant]
     Active Substance: AMLODIPINE BESYLATE
     Indication: HYPERTENSION
     Dosage: UNK
     Route: 065

REACTIONS (1)
  - Acute kidney injury [Recovered/Resolved]
